FAERS Safety Report 11557534 (Version 1)
Quarter: 2015Q3

REPORT INFORMATION
  Report Type: Spontaneous
  Country: GB (occurrence: GB)
  Receive Date: 20150926
  Receipt Date: 20150926
  Transmission Date: 20151125
  Serious: Yes (Other)
  Sender: FDA-Public Use
  Company Number: GB-009507513-1509GBR012961

PATIENT
  Age: 42 Year
  Sex: Male
  Weight: 90 kg

DRUGS (12)
  1. RIBAVIRIN. [Suspect]
     Active Substance: RIBAVIRIN
     Indication: CHRONIC HEPATITIS C
     Dosage: OMBITASVIR 12.4MG/PARITAPREVIR 75MG/RITONAVIR 50MG/DASABUVIR 250MG (AND RIBAVIRIN 1200MG)
     Route: 048
     Dates: start: 20150417
  2. MIRTAZAPINE. [Concomitant]
     Active Substance: MIRTAZAPINE
  3. VIEKIRAX [Suspect]
     Active Substance: OMBITASVIR\PARITAPREVIR\RITONAVIR
     Indication: CHRONIC HEPATITIS C
     Dosage: OMBITASVIR 12.4MG/PARITAPREVIR 75MG/RITONAVIR 50MG/DASABUVIR 250MG (AND RIBAVIRIN 1200MG)
     Route: 048
     Dates: start: 20150417
  4. DIACETYLMORPHINE [Concomitant]
     Active Substance: DIACETYLMORPHINE
  5. LEVOTHYROXINE SODIUM. [Concomitant]
     Active Substance: LEVOTHYROXINE SODIUM
  6. METHADONE HYDROCHLORIDE. [Concomitant]
     Active Substance: METHADONE HYDROCHLORIDE
  7. THIAMINE. [Concomitant]
     Active Substance: THIAMINE
  8. EXVIERA [Suspect]
     Active Substance: DASABUVIR
     Indication: CHRONIC HEPATITIS C
     Dosage: OMBITASVIR 12.4MG/PARITAPREVIR 75MG/RITONAVIR 50MG/DASABUVIR 250MG (AND RIBAVIRIN 1200MG)
     Route: 048
     Dates: start: 20150417
  9. VITAMIN B COMPLEX [Concomitant]
     Active Substance: CYANOCOBALAMIN\DEXPANTHENOL\NIACINAMIDE\PYRIDOXINE HYDROCHLORIDE\RIBOFLAVIN 5^-PHOSPHATE SODIUM\THIAMINE HYDROCHLORIDE\VITAMIN B COMPLEX
  10. CITALOPRAM [Concomitant]
     Active Substance: CITALOPRAM HYDROBROMIDE
  11. DIAZEPAM. [Concomitant]
     Active Substance: DIAZEPAM
  12. GABAPENTIN. [Concomitant]
     Active Substance: GABAPENTIN

REACTIONS (1)
  - VIIth nerve paralysis [Recovered/Resolved]

NARRATIVE: CASE EVENT DATE: 20150807
